FAERS Safety Report 5686356-0 (Version None)
Quarter: 2008Q1

REPORT INFORMATION
  Report Type: 
  Country: None (occurrence: None)
  Receive Date: 20080328
  Receipt Date: 20070627
  Transmission Date: 20080703
  Serious: No
  Sender: FDA-Public Use
  Company Number: US-BAYER-US-2007-025020

PATIENT
  Sex: Female

DRUGS (2)
  1. MIRENA [Suspect]
     Indication: MENORRHAGIA
     Route: 015
  2. ANTICOAGULANT [Concomitant]
     Indication: ANTICOAGULANT THERAPY

REACTIONS (3)
  - DRUG INEFFECTIVE [None]
  - MENORRHAGIA [None]
  - UTERINE LEIOMYOMA [None]
